FAERS Safety Report 9010043 (Version 1)
Quarter: 2013Q1

REPORT INFORMATION
  Report Type: Spontaneous
  Country: US (occurrence: US)
  Receive Date: 20130110
  Receipt Date: 20130110
  Transmission Date: 20140127
  Serious: Yes (Hospitalization, Other)
  Sender: FDA-Public Use
  Company Number: US-009507513-0907USA03595

PATIENT
  Age: 55 Year
  Sex: Female
  Weight: 83 kg

DRUGS (26)
  1. SINGULAIR [Suspect]
     Route: 048
  2. TYKERB [Suspect]
     Indication: BREAST CANCER
     Dosage: 1000 MG, QD
     Route: 048
  3. ADVICOR [Suspect]
  4. CHANTIX [Suspect]
  5. HERCEPTIN [Suspect]
     Indication: BREAST CANCER
     Dosage: 2 MG/KG, QW
     Route: 042
  6. ANUSOL (BISMUTH SUBGALLATE (+) PRAMOXINE HYDROCHLORIDE) [Concomitant]
  7. ASCORBIC ACID [Concomitant]
  8. BIOTIN [Concomitant]
  9. CLARITIN [Concomitant]
  10. CLINDAMYCIN PHOSPHATE [Concomitant]
  11. COMBIVENT [Concomitant]
  12. CORTANE B [Concomitant]
  13. EFFEXOR [Concomitant]
  14. FEMARA [Concomitant]
  15. FLOVENT [Concomitant]
  16. GAS-X EXTRA STRENGTH [Concomitant]
  17. LOVAZA [Concomitant]
  18. HYDROCORTISONE [Concomitant]
     Dosage: 10 MG, UNK
  19. VITAMINS (UNSPECIFIED) [Concomitant]
  20. NEXIUM [Concomitant]
  21. REPLENS [Concomitant]
  22. SUDAFED SINUS [Concomitant]
  23. TYKERB [Concomitant]
  24. VITAMIN B COMPLEX [Concomitant]
  25. VITAMIN D (UNSPECIFIED) [Concomitant]
  26. XANAX [Concomitant]

REACTIONS (2)
  - Pulmonary embolism [Unknown]
  - Therapeutic response decreased [Unknown]
